FAERS Safety Report 6009128-6 (Version None)
Quarter: 2008Q4

REPORT INFORMATION
  Report Type: 
  Country: None (occurrence: None)
  Receive Date: 20081216
  Receipt Date: 20080912
  Transmission Date: 20090506
  Serious: Yes (Disabling)
  Sender: FDA-Public Use
  Company Number: P-SEA76-11-208

PATIENT
  Age: 24 Year
  Sex: Female

DRUGS (1)
  1. SEASONALE [Suspect]
     Indication: CONTRACEPTION
     Dates: start: 20081024, end: 20081122

REACTIONS (2)
  - VISION BLURRED [None]
  - VISUAL ACUITY REDUCED [None]
